FAERS Safety Report 15325559 (Version 1)
Quarter: 2018Q3

REPORT INFORMATION
  Report Type: Spontaneous
  Country: IT (occurrence: IT)
  Receive Date: 20180828
  Receipt Date: 20180828
  Transmission Date: 20181010
  Serious: Yes (Hospitalization)
  Sender: FDA-Public Use
  Company Number: IT-PFIZER INC-2018341576

PATIENT
  Age: 46 Year
  Sex: Female

DRUGS (2)
  1. ALPRAZOLAM. [Suspect]
     Active Substance: ALPRAZOLAM
     Dosage: 2.5 MG, SINGLE
     Route: 048
     Dates: start: 20180417, end: 20180417
  2. LORAZEPAM. [Suspect]
     Active Substance: LORAZEPAM
     Dosage: 30 MG, SINGLE
     Route: 048
     Dates: start: 20180417, end: 20180417

REACTIONS (3)
  - Drug abuse [Recovered/Resolved]
  - Suicide attempt [Recovered/Resolved]
  - Sopor [Recovered/Resolved]

NARRATIVE: CASE EVENT DATE: 20180417
